FAERS Safety Report 25460001 (Version 2)
Quarter: 2025Q3

REPORT INFORMATION
  Report Type: Spontaneous
  Country: AU (occurrence: AU)
  Receive Date: 20250620
  Receipt Date: 20250707
  Transmission Date: 20251021
  Serious: Yes (Other)
  Sender: MYLAN
  Company Number: AU-MYLANLABS-2025M1050816

PATIENT
  Age: 49 Year
  Sex: Female
  Weight: 130 kg

DRUGS (6)
  1. CLOZARIL [Suspect]
     Active Substance: CLOZAPINE
     Indication: Schizophrenia
  2. FLUOXETINE [Suspect]
     Active Substance: FLUOXETINE HYDROCHLORIDE
     Indication: Product used for unknown indication
     Dosage: 120 MILLIGRAM, QD
  3. ROSUVASTATIN [Suspect]
     Active Substance: ROSUVASTATIN
     Indication: Product used for unknown indication
  4. LITHIUM CARBONATE [Suspect]
     Active Substance: LITHIUM CARBONATE
     Indication: Product used for unknown indication
     Dosage: 250 MILLIGRAM, BID
  5. METFORMIN [Suspect]
     Active Substance: METFORMIN HYDROCHLORIDE
     Indication: Product used for unknown indication
  6. BENZTROPINE MESYLATE [Suspect]
     Active Substance: BENZTROPINE MESYLATE
     Indication: Product used for unknown indication
     Dosage: 2 MILLIGRAM, QD

REACTIONS (13)
  - Mitral valve incompetence [Unknown]
  - Left ventricular dysfunction [Unknown]
  - Cardiomyopathy [Unknown]
  - Ejection fraction decreased [Unknown]
  - Troponin increased [Recovered/Resolved]
  - Tachycardia [Unknown]
  - Blood pressure increased [Unknown]
  - White blood cell count increased [Recovering/Resolving]
  - Neutrophilia [Recovering/Resolving]
  - Monocytosis [Recovered/Resolved]
  - Gamma-glutamyltransferase increased [Unknown]
  - Blood creatine phosphokinase decreased [Unknown]
  - C-reactive protein increased [Unknown]

NARRATIVE: CASE EVENT DATE: 20250318
